FAERS Safety Report 10254881 (Version 1)
Quarter: 2014Q2

REPORT INFORMATION
  Report Type: Spontaneous
  Country: US (occurrence: US)
  Receive Date: 20140624
  Receipt Date: 20140624
  Transmission Date: 20141212
  Serious: No
  Sender: FDA-Public Use
  Company Number: US-SHIRE-US201403231

PATIENT
  Sex: Female

DRUGS (1)
  1. LIALDA [Suspect]
     Indication: COLITIS ULCERATIVE
     Dosage: 4.8 G (FOUR OF 1.2 G TABLETS), UNKNOWN (PER DAY)
     Route: 048
     Dates: start: 201406

REACTIONS (1)
  - Heart rate irregular [Not Recovered/Not Resolved]
